FAERS Safety Report 4286446-3 (Version None)
Quarter: 2004Q1

REPORT INFORMATION
  Report Type: 
  Country: None (occurrence: None)
  Receive Date: 20040204
  Receipt Date: 20040126
  Transmission Date: 20041129
  Serious: Yes (Other)
  Sender: FDA-Public Use
  Company Number: 2004196049SE

PATIENT
  Age: 25 Year
  Sex: Female

DRUGS (1)
  1. TRELSTAR DEPOT [Suspect]
     Indication: ENDOMETRIOSIS
     Dosage: 3.75 MG, MONTHLY, INTRAMUSCULAR
     Route: 030
     Dates: start: 20030505, end: 20030807

REACTIONS (1)
  - SYNCOPE VASOVAGAL [None]
